FAERS Safety Report 7773955-5 (Version None)
Quarter: 2011Q3

REPORT INFORMATION
  Report Type: 
  Country: None (occurrence: None)
  Receive Date: 20110921
  Receipt Date: 20110819
  Transmission Date: 20111222
  Serious: Yes (Hospitalization)
  Sender: FDA-Public Use
  Company Number: UTC-009605

PATIENT
  Age: 29 Year
  Sex: Female
  Weight: 70.45 kg

DRUGS (3)
  1. TYVASO [Suspect]
     Indication: COR PULMONALE CHRONIC
     Dosage: 96 MCG (24 MCG,4 IN 1 D),INHALATION
     Route: 055
     Dates: start: 20110524, end: 20110804
  2. TRACLEER [Concomitant]
  3. ADCIRCA [Concomitant]

REACTIONS (1)
  - PNEUMONIA [None]
